FAERS Safety Report 24122752 (Version 1)
Quarter: 2024Q3

REPORT INFORMATION
  Report Type: Report from Study
  Country: DE (occurrence: DE)
  Receive Date: 20240723
  Receipt Date: 20240723
  Transmission Date: 20241017
  Serious: Yes (Other)
  Sender: EMD SERONO INC
  Company Number: DE-Merck Healthcare KGaA-2024038336

PATIENT
  Sex: Female

DRUGS (2)
  1. SAIZEN [Suspect]
     Active Substance: SOMATROPIN
     Indication: Pain
  2. SAIZEN [Suspect]
     Active Substance: SOMATROPIN
     Indication: Ill-defined disorder

REACTIONS (3)
  - Illness [Unknown]
  - Skin cancer [Unknown]
  - Off label use [Unknown]
